FAERS Safety Report 6568117-3 (Version None)
Quarter: 2010Q1

REPORT INFORMATION
  Report Type: 
  Country: None (occurrence: None)
  Receive Date: 20100129
  Receipt Date: 20100113
  Transmission Date: 20100710
  Serious: Yes (Hospitalization)
  Sender: FDA-Public Use
  Company Number: 2009AC000384

PATIENT
  Age: 53 Year
  Sex: Female

DRUGS (31)
  1. DIGOXIN [Suspect]
     Dosage: 0.125 MG;PO
     Route: 048
     Dates: start: 20071101, end: 20080401
  2. DIGOXIN [Suspect]
     Dosage: 0.25 MG;QD;PO
     Route: 048
     Dates: start: 20091120
  3. PREMARIN [Concomitant]
  4. CHANTIX [Concomitant]
  5. HYDROCODONE [Concomitant]
  6. CYCLOBENZAPRINE [Concomitant]
  7. ASPIRIN [Concomitant]
  8. LISINOPRIL [Concomitant]
  9. TYLENOL-500 [Concomitant]
  10. WELLBUTRIN [Concomitant]
  11. XANAX [Concomitant]
  12. FLECAINIDE ACETATE [Concomitant]
  13. FLEXERIL [Concomitant]
  14. TRAMADOL HCL [Concomitant]
  15. LORTAB [Concomitant]
  16. ZITHROMAX [Concomitant]
  17. ALPRAZOLAM [Concomitant]
  18. FLECAINIDE ACETATE [Concomitant]
  19. BUPROPION [Concomitant]
  20. LEXAPRO [Concomitant]
  21. LYRICA [Concomitant]
  22. CIPROFLOXACIN [Concomitant]
  23. PHENAZOPYRIDIN [Concomitant]
  24. AMITRIPTYLINE HCL [Concomitant]
  25. LEXAPRO [Concomitant]
  26. CYCLOBENZAPRINE [Concomitant]
  27. ACETAMINOPHEN AND HYDROCODONE BITARTRATE [Concomitant]
  28. WELLBUTRIN [Concomitant]
  29. LEVAQUIN [Concomitant]
  30. DILTIAZEM HCL [Concomitant]
  31. ELAVIL [Concomitant]

REACTIONS (26)
  - ABDOMINAL PAIN [None]
  - ANXIETY [None]
  - ATRIAL FLUTTER [None]
  - BACK PAIN [None]
  - CORONARY ARTERY DISEASE [None]
  - COUGH [None]
  - DEFORMITY [None]
  - DIARRHOEA [None]
  - DYSPNOEA EXERTIONAL [None]
  - FLANK PAIN [None]
  - HEADACHE [None]
  - HYPERHIDROSIS [None]
  - INSOMNIA [None]
  - LIPOMA [None]
  - NAUSEA [None]
  - NECK PAIN [None]
  - NEPHROLITHIASIS [None]
  - ORAL CANDIDIASIS [None]
  - PAIN [None]
  - PALPITATIONS [None]
  - PANIC ATTACK [None]
  - PLEURITIC PAIN [None]
  - SPINAL OSTEOARTHRITIS [None]
  - VOMITING [None]
  - WEIGHT DECREASED [None]
  - WHEEZING [None]
